FAERS Safety Report 17096663 (Version 1)
Quarter: 2019Q4

REPORT INFORMATION
  Report Type: Spontaneous
  Country: IN (occurrence: IN)
  Receive Date: 20191202
  Receipt Date: 20191202
  Transmission Date: 20200122
  Serious: Yes (Life-Threatening, Hospitalization, Other)
  Sender: FDA-Public Use
  Company Number: IN-LUPIN PHARMACEUTICALS INC.-2019-07908

PATIENT
  Age: 82 Year
  Sex: Male

DRUGS (1)
  1. LINEZOLID. [Suspect]
     Active Substance: LINEZOLID
     Indication: ANTIBIOTIC PROPHYLAXIS
     Dosage: 600 MILLIGRAM, BID
     Route: 065

REACTIONS (6)
  - Inappropriate antidiuretic hormone secretion [Unknown]
  - Hyponatraemia [Recovering/Resolving]
  - Respiratory distress [Recovering/Resolving]
  - Bone marrow failure [Recovering/Resolving]
  - Hypoglycaemia [Recovered/Resolved]
  - Toxicity to various agents [Recovering/Resolving]
